FAERS Safety Report 8126056-0 (Version None)
Quarter: 2012Q1

REPORT INFORMATION
  Report Type: 
  Country: None (occurrence: None)
  Receive Date: 20120209
  Receipt Date: 20120127
  Transmission Date: 20120608
  Serious: Yes (Hospitalization)
  Sender: FDA-Public Use
  Company Number: PHHY2012JP009787

PATIENT
  Age: 83 Year
  Sex: Female

DRUGS (13)
  1. NICERGOLINE [Concomitant]
  2. ENALAPRIL MALEATE [Concomitant]
  3. GASGEL [Concomitant]
  4. ITOPRIDE HYDROCHLORIDE [Concomitant]
     Route: 048
  5. PANTETHINE [Concomitant]
     Route: 048
  6. CHLORPROPAMIDE [Concomitant]
     Route: 048
  7. RHEUM PALMATUM [Concomitant]
  8. VEMAS S [Concomitant]
  9. NITRENDIPINE [Concomitant]
  10. LEDOLPER [Concomitant]
  11. MIYA-BM [Concomitant]
  12. SALAGEN [Suspect]
     Indication: THIRST
     Dosage: 15 MG, TID
     Route: 048
     Dates: start: 20120118, end: 20120119
  13. MAGMITT KENEI [Concomitant]
     Route: 048

REACTIONS (3)
  - HYPERHIDROSIS [None]
  - TREMOR [None]
  - HYPOTHERMIA [None]
